FAERS Safety Report 8389193-1 (Version None)
Quarter: 2012Q2

REPORT INFORMATION
  Report Type: 
  Country: None (occurrence: None)
  Receive Date: 20120528
  Receipt Date: 20120524
  Transmission Date: 20120825
  Serious: Yes (Other)
  Sender: FDA-Public Use
  Company Number: PHHY2009CA15416

PATIENT
  Sex: Female
  Weight: 56.689 kg

DRUGS (8)
  1. SANDOSTATIN LAR [Suspect]
     Dosage: 30 MG, EVERY 4 WEEKS
     Route: 030
  2. SANDOSTATIN [Suspect]
     Dosage: 150 UG, TID (PRN)
     Route: 058
     Dates: start: 20110920
  3. SANDOSTATIN [Suspect]
     Indication: CARCINOID SYNDROME
     Dosage: 7 UG, QD
     Dates: start: 20081106
  4. SANDOSTATIN LAR [Suspect]
     Indication: CARCINOID SYNDROME
     Dosage: 30 MG, EVERY FOUR WEEKS
     Route: 030
     Dates: start: 20070320
  5. SANDOSTATIN LAR [Suspect]
     Dosage: 30 MG, EVERY 4 WEEKS
     Route: 030
     Dates: start: 20070320
  6. SANDOSTATIN [Suspect]
     Dosage: 0.75 ML, TID PRN
     Route: 058
  7. SANDOSTATIN LAR [Suspect]
     Dosage: 30 MG, QMO
     Route: 030
  8. SANDOSTATIN [Suspect]
     Dosage: 0.75 ML, BID
     Route: 058

REACTIONS (26)
  - WEIGHT INCREASED [None]
  - INJECTION SITE ERYTHEMA [None]
  - MOOD SWINGS [None]
  - ABDOMINAL DISTENSION [None]
  - VERTIGO [None]
  - BLOOD THYROID STIMULATING HORMONE INCREASED [None]
  - FATIGUE [None]
  - THYROXINE INCREASED [None]
  - INCORRECT ROUTE OF DRUG ADMINISTRATION [None]
  - OEDEMA PERIPHERAL [None]
  - DIARRHOEA [None]
  - PAIN IN EXTREMITY [None]
  - INJECTION SITE PAIN [None]
  - CONFUSIONAL STATE [None]
  - INJECTION SITE DISCOMFORT [None]
  - FLUSHING [None]
  - INJECTION SITE MASS [None]
  - MALAISE [None]
  - WEIGHT DECREASED [None]
  - BLOOD PRESSURE SYSTOLIC INCREASED [None]
  - DIZZINESS [None]
  - INCORRECT STORAGE OF DRUG [None]
  - HOT FLUSH [None]
  - MUSCLE SPASMS [None]
  - FEELING ABNORMAL [None]
  - VISUAL IMPAIRMENT [None]
